FAERS Safety Report 24589214 (Version 1)
Quarter: 2024Q4

REPORT INFORMATION
  Report Type: Spontaneous
  Country: US (occurrence: None)
  Receive Date: 20241106
  Receipt Date: 20241106
  Transmission Date: 20250114
  Serious: Yes (Hospitalization)
  Sender: Public
  Company Number: None

PATIENT
  Age: 76 Year
  Sex: Female
  Weight: 191 kg

DRUGS (3)
  1. ATORVASTATIN CALCIUM [Suspect]
     Active Substance: ATORVASTATIN CALCIUM
     Indication: Vascular device user
     Dosage: FREQUENCY : DAILY;?
     Route: 048
     Dates: end: 20240828
  2. BUPROPION [Suspect]
     Active Substance: BUPROPION
  3. NITROFURANTOIN [Suspect]
     Active Substance: NITROFURANTOIN

REACTIONS (8)
  - Liver function test increased [None]
  - Abdominal pain upper [None]
  - Drug-induced liver injury [None]
  - Autoimmune disorder [None]
  - Portal vein thrombosis [None]
  - Aspartate aminotransferase increased [None]
  - Alanine aminotransferase increased [None]
  - Blood alkaline phosphatase increased [None]

NARRATIVE: CASE EVENT DATE: 20240827
